FAERS Safety Report 10957058 (Version 1)
Quarter: 2015Q1

REPORT INFORMATION
  Report Type: Spontaneous
  Country: BR (occurrence: US)
  Receive Date: 20150326
  Receipt Date: 20150326
  Transmission Date: 20150721
  Serious: No
  Sender: FDA-Public Use
  Company Number: BR-PFIZER INC-2011207060

PATIENT
  Age: 50 Year
  Sex: Female
  Weight: 80 kg

DRUGS (16)
  1. CRESTOR [Concomitant]
     Active Substance: ROSUVASTATIN CALCIUM
     Indication: BLOOD CHOLESTEROL ABNORMAL
  2. EXODUS [Concomitant]
     Active Substance: ESCITALOPRAM OXALATE
     Indication: ANXIETY
     Dosage: 10 MG, 1X/DAY
     Dates: start: 201209
  3. CHAMPIX [Suspect]
     Active Substance: VARENICLINE TARTRATE
     Dosage: UNK
     Route: 048
     Dates: start: 201201, end: 2012
  4. ASPIRINA PREVENT [Concomitant]
     Active Substance: ASPIRIN
     Indication: ANTICOAGULANT THERAPY
  5. OMEPRAZOLE. [Concomitant]
     Active Substance: OMEPRAZOLE
     Indication: ABDOMINAL DISCOMFORT
  6. SUSTRATE [Concomitant]
     Active Substance: PROPATYL NITRATE
     Indication: ANGIOPLASTY
     Dosage: UNK
  7. CHAMPIX [Suspect]
     Active Substance: VARENICLINE TARTRATE
     Indication: SMOKING CESSATION THERAPY
     Dosage: UNK
     Route: 048
     Dates: start: 201108, end: 2011
  8. CHAMPIX [Suspect]
     Active Substance: VARENICLINE TARTRATE
     Dosage: UNK
     Route: 048
     Dates: start: 20120830
  9. CRESTOR [Concomitant]
     Active Substance: ROSUVASTATIN CALCIUM
     Indication: PROPHYLAXIS
     Dosage: 20 MG, 1X/DAY
     Dates: start: 201106
  10. CRESTOR [Concomitant]
     Active Substance: ROSUVASTATIN CALCIUM
     Indication: ANGIOPLASTY
  11. CLOPIDOGREL BISULFATE. [Concomitant]
     Active Substance: CLOPIDOGREL BISULFATE
     Indication: ANGIOPLASTY
     Dosage: 75 MG, 1X/DAY
     Dates: start: 2011
  12. BRILINTA [Concomitant]
     Active Substance: TICAGRELOR
     Indication: ANTIPLATELET THERAPY
     Dosage: 90 MG, 2X/DAY
     Dates: start: 2013
  13. SELOZOK [Concomitant]
     Active Substance: METOPROLOL SUCCINATE
     Indication: PALPITATIONS
     Dosage: 25 MG, DAILY
     Dates: start: 2012
  14. ASPIRINA PREVENT [Concomitant]
     Active Substance: ASPIRIN
     Indication: ANGIOPLASTY
     Dosage: 100 MG, 1X/DAY
     Dates: start: 2011
  15. CHAMPIX [Suspect]
     Active Substance: VARENICLINE TARTRATE
     Dosage: 1 MG, 2X/DAY
     Route: 048
     Dates: start: 2011, end: 2011
  16. OMEPRAZOLE. [Concomitant]
     Active Substance: OMEPRAZOLE
     Indication: GASTROOESOPHAGEAL REFLUX DISEASE
     Dosage: 1 TABLET, AS NEEDED
     Dates: start: 2012

REACTIONS (6)
  - Headache [Unknown]
  - Insomnia [Not Recovered/Not Resolved]
  - Tobacco user [Unknown]
  - Feeling of body temperature change [Unknown]
  - Nausea [Not Recovered/Not Resolved]
  - Peripheral coldness [Unknown]

NARRATIVE: CASE EVENT DATE: 2011
